FAERS Safety Report 9677529 (Version 2)
Quarter: 2014Q1

REPORT INFORMATION
  Report Type: Spontaneous
  Country: GB (occurrence: GB)
  Receive Date: 20131108
  Receipt Date: 20140206
  Transmission Date: 20141002
  Serious: Yes (Death, Hospitalization)
  Sender: FDA-Public Use
  Company Number: PHFR2013GB006316

PATIENT
  Sex: Female

DRUGS (6)
  1. CLOZARIL [Suspect]
     Indication: SCHIZOPHRENIA
     Dosage: UNK
     Route: 048
     Dates: start: 20101025
  2. CLOZARIL [Suspect]
     Dosage: 300 MG
     Route: 048
  3. MIRTAZAPINE [Concomitant]
     Indication: DEPRESSION
     Dosage: 45 MG, UNK
     Route: 048
  4. ZOPICLONE [Concomitant]
     Dosage: 75 MG, UNK
     Route: 048
  5. DIAZEPAM [Concomitant]
     Dosage: 2 MG, TID
     Route: 048
  6. PROZAC [Concomitant]
     Dosage: 40 MG, UNK
     Route: 048

REACTIONS (3)
  - Bronchitis [Fatal]
  - Spinal cord injury [Unknown]
  - Asthenia [Unknown]
